FAERS Safety Report 9169566 (Version 1)
Quarter: 2013Q1

REPORT INFORMATION
  Report Type: Spontaneous
  Country: ES (occurrence: ES)
  Receive Date: 20130318
  Receipt Date: 20130318
  Transmission Date: 20140127
  Serious: Yes (Other)
  Sender: FDA-Public Use
  Company Number: ES-009507513-1303ESP006139

PATIENT
  Age: 82 Year
  Sex: Male

DRUGS (5)
  1. AMITRIPTYLINE HYDROCHLORIDE [Suspect]
     Indication: FRACTURE
     Dosage: UNK
     Route: 048
     Dates: start: 20130211
  2. DOLOCATIL [Suspect]
     Dosage: UNK
     Route: 048
     Dates: start: 20130211
  3. DEPRAX (TRAZODONE HYDROCHLORIDE) [Suspect]
     Dosage: UNK
     Route: 048
     Dates: start: 20130115
  4. QUETIAPINE FUMARATE [Suspect]
     Dosage: UNK
     Route: 048
     Dates: start: 20130115
  5. MIRAPEXIN [Concomitant]
     Dosage: UNK
     Dates: start: 20130129

REACTIONS (1)
  - Cholestasis [Recovering/Resolving]
